FAERS Safety Report 11803453 (Version 1)
Quarter: 2015Q4

REPORT INFORMATION
  Report Type: Spontaneous
  Country: GB (occurrence: GB)
  Receive Date: 20151204
  Receipt Date: 20151204
  Transmission Date: 20160305
  Serious: Yes (Hospitalization)
  Sender: FDA-Public Use
  Company Number: GB-TEVA-612303ACC

PATIENT
  Age: 57 Year
  Sex: Female
  Weight: 62.6 kg

DRUGS (11)
  1. LANSOPRAZOLE. [Suspect]
     Active Substance: LANSOPRAZOLE
     Indication: GASTROOESOPHAGEAL REFLUX DISEASE
     Dosage: 60 MILLIGRAM DAILY;
     Route: 048
     Dates: start: 20060601, end: 20151106
  2. SERETIDE [Concomitant]
     Active Substance: FLUTICASONE FUROATE\SALMETEROL XINAFOATE
     Dosage: 250 EVOHALER.
     Route: 055
  3. SERTRALINE [Suspect]
     Active Substance: SERTRALINE HYDROCHLORIDE
     Dosage: 150 MILLIGRAM DAILY; PREVIOUSLY 100MG OD RECENTLY INCREASED TO 150MG OD ABOUT 2/52 AGO BY GP
     Route: 048
     Dates: start: 201510
  4. TIOTROPIUM [Concomitant]
     Active Substance: TIOTROPIUM
     Dosage: 18 MICROGRAM DAILY;
     Route: 055
  5. ADCAL-D3 [Concomitant]
     Active Substance: CALCIUM CARBONATE\CHOLECALCIFEROL
     Dosage: 4 DOSAGE FORMS DAILY;
  6. SERTRALINE [Suspect]
     Active Substance: SERTRALINE HYDROCHLORIDE
     Indication: DEPRESSION
     Dosage: 100 MILLIGRAM DAILY; PREVIOUSLY 100MG ONCE A DAY RECENTLY INCREASED TO 150MG OD ABOUT 2/52 AGO BY GP
     Route: 048
     Dates: start: 20140301, end: 201510
  7. ENOXAPARIN [Concomitant]
     Active Substance: ENOXAPARIN
     Indication: PULMONARY EMBOLISM
     Dosage: 100 MILLIGRAM DAILY;
     Route: 058
  8. CARBOCISTEINE [Concomitant]
     Active Substance: CARBOCYSTEINE
     Dosage: 1500 MILLIGRAM DAILY;
  9. DIAZEPAM. [Concomitant]
     Active Substance: DIAZEPAM
     Dosage: 2 MILLIGRAM DAILY;
  10. SALBUTAMOL [Concomitant]
     Active Substance: ALBUTEROL
     Dosage: EVOHALER.
     Route: 055
  11. PREDNISOLONE. [Concomitant]
     Active Substance: PREDNISOLONE
     Dosage: 15 MILLIGRAM DAILY; LONG TERM.

REACTIONS (3)
  - Hyponatraemia [Not Recovered/Not Resolved]
  - Sepsis [Unknown]
  - Dyspnoea [Unknown]

NARRATIVE: CASE EVENT DATE: 20151106
